FAERS Safety Report 17650526 (Version 1)
Quarter: 2020Q2

REPORT INFORMATION
  Report Type: Spontaneous
  Country: US (occurrence: US)
  Receive Date: 20200408
  Receipt Date: 20200408
  Transmission Date: 20200713
  Serious: No
  Sender: FDA-Public Use
  Company Number: None

PATIENT
  Age: 51 Year
  Sex: Female
  Weight: 72 kg

DRUGS (2)
  1. OXYCODONE/ACETAMINOPHEN 7.5-325 MG TB [Suspect]
     Active Substance: ACETAMINOPHEN\OXYCODONE HYDROCHLORIDE
     Indication: PAIN
     Dosage: ?          QUANTITY:1 TABLET(S);?
     Route: 048
     Dates: start: 20200325, end: 20200406
  2. OXYCODONE 7.5MG [Concomitant]
     Active Substance: OXYCODONE HYDROCHLORIDE

REACTIONS (8)
  - Insomnia [None]
  - Cold sweat [None]
  - Abdominal pain upper [None]
  - Nightmare [None]
  - Nausea [None]
  - Inadequate analgesia [None]
  - Product formulation issue [None]
  - Product physical issue [None]

NARRATIVE: CASE EVENT DATE: 20200325
